FAERS Safety Report 15689503 (Version 1)
Quarter: 2018Q4

REPORT INFORMATION
  Report Type: Spontaneous
  Country: US (occurrence: US)
  Receive Date: 20181205
  Receipt Date: 20181205
  Transmission Date: 20190205
  Serious: No
  Sender: FDA-Public Use
  Company Number: US-ASTRAZENECA-2018SF48700

PATIENT

DRUGS (1)
  1. NEXIUM [Suspect]
     Active Substance: ESOMEPRAZOLE MAGNESIUM
     Dosage: 40 MG IN THE MORNING AND PEPCID AT NIGHT.
     Route: 048

REACTIONS (3)
  - Dysphonia [Unknown]
  - Reflux gastritis [Unknown]
  - Pharyngeal oedema [Unknown]
